FAERS Safety Report 13687250 (Version 1)
Quarter: 2017Q2

REPORT INFORMATION
  Report Type: Spontaneous
  Country: CN (occurrence: CN)
  Receive Date: 20170623
  Receipt Date: 20170623
  Transmission Date: 20170830
  Serious: Yes (Other)
  Sender: FDA-Public Use
  Company Number: CN-BAXTER-2017BAX025222

PATIENT
  Age: 31 Year
  Sex: Female
  Weight: 65.2 kg

DRUGS (8)
  1. DEXAMETHASONE SODIUM PHOSPHATE. [Suspect]
     Active Substance: DEXAMETHASONE SODIUM PHOSPHATE
     Indication: EYE PRURITUS
     Route: 042
     Dates: start: 20170326
  2. DEXAMETHASONE SODIUM PHOSPHATE. [Suspect]
     Active Substance: DEXAMETHASONE SODIUM PHOSPHATE
     Indication: OROPHARYNGEAL DISCOMFORT
  3. SODIUM LACTATE RINGER^S INJECTION 500ML [Suspect]
     Active Substance: RINGER^S SOLUTION, LACTATED
     Indication: EYE PRURITUS
     Dosage: WITH A SPEED NO MORE THAN 60 DROPS/MINUTE
     Route: 042
     Dates: start: 20170326
  4. SODIUM LACTATE RINGER^S INJECTION 500ML [Suspect]
     Active Substance: RINGER^S SOLUTION, LACTATED
     Indication: BLEPHARITIS
  5. SODIUM LACTATE RINGER^S INJECTION 500ML [Suspect]
     Active Substance: RINGER^S SOLUTION, LACTATED
     Indication: OROPHARYNGEAL DISCOMFORT
  6. 0.9% SODIUM CHLORIDE INJECTION [Suspect]
     Active Substance: SODIUM CHLORIDE
     Indication: MEDICATION DILUTION
     Dosage: WITH A SPEED NO MORE THAN 60 DROPS/MIN
     Route: 041
     Dates: start: 20170326, end: 20170326
  7. CEFUROXIME. [Suspect]
     Active Substance: CEFUROXIME
     Indication: INFECTION PROPHYLAXIS
     Dosage: WITH A SPEED NO MORE THAN 60 DROPS/MIN
     Route: 041
     Dates: start: 20170326, end: 20170326
  8. DEXAMETHASONE SODIUM PHOSPHATE. [Suspect]
     Active Substance: DEXAMETHASONE SODIUM PHOSPHATE
     Indication: BLEPHARITIS

REACTIONS (4)
  - Eye pruritus [Recovered/Resolved]
  - Blepharitis [Recovered/Resolved]
  - Exposure during pregnancy [Recovered/Resolved]
  - Oropharyngeal discomfort [Recovered/Resolved]

NARRATIVE: CASE EVENT DATE: 20170326
